FAERS Safety Report 10507976 (Version 1)
Quarter: 2014Q4

REPORT INFORMATION
  Report Type: Spontaneous
  Country: US (occurrence: US)
  Receive Date: 20141009
  Receipt Date: 20141009
  Transmission Date: 20150528
  Serious: No
  Sender: FDA-Public Use
  Company Number: US-PFIZER INC-2014274897

PATIENT
  Age: 67 Year
  Sex: Female

DRUGS (1)
  1. CELEBREX [Suspect]
     Active Substance: CELECOXIB
     Indication: ARTHRITIS
     Dosage: 200 MG, UNK

REACTIONS (3)
  - Circumstance or information capable of leading to medication error [Unknown]
  - Physical product label issue [Unknown]
  - Product dosage form confusion [Unknown]
